FAERS Safety Report 6903770-3 (Version None)
Quarter: 2010Q3

REPORT INFORMATION
  Report Type: 
  Country: None (occurrence: None)
  Receive Date: 20100804
  Receipt Date: 20081212
  Transmission Date: 20110219
  Serious: No
  Sender: FDA-Public Use
  Company Number: US-PFIZER INC-2008153335

PATIENT
  Sex: Female
  Weight: 57.1 kg

DRUGS (4)
  1. LYRICA [Suspect]
     Indication: NERVOUS SYSTEM DISORDER
     Dosage: UNK
     Dates: start: 20060101
  2. CYMBALTA [Concomitant]
  3. LORAZEPAM [Concomitant]
  4. AMBIEN [Concomitant]

REACTIONS (3)
  - MUSCULOSKELETAL PAIN [None]
  - PAIN IN EXTREMITY [None]
  - RASH MACULAR [None]
